FAERS Safety Report 6444944-8 (Version None)
Quarter: 2009Q4

REPORT INFORMATION
  Report Type: 
  Country: None (occurrence: None)
  Receive Date: 20091117
  Receipt Date: 20091117
  Transmission Date: 20100525
  Serious: No
  Sender: FDA-Public Use
  Company Number: None

PATIENT

DRUGS (2)
  1. SINGULAIR [Suspect]
     Indication: ASTHMA
     Dosage: 10MG TAB 1 X PER DAY PO APPROX 17MONTHS
     Route: 048
     Dates: start: 20080601, end: 20091111
  2. SINGULAIR [Suspect]
     Indication: MULTIPLE ALLERGIES
     Dosage: 10MG TAB 1 X PER DAY PO APPROX 17MONTHS
     Route: 048
     Dates: start: 20080601, end: 20091111

REACTIONS (3)
  - CARPAL TUNNEL SYNDROME [None]
  - DRUG DISPENSING ERROR [None]
  - DRUG DOSE OMISSION [None]
